FAERS Safety Report 12235138 (Version 3)
Quarter: 2016Q2

REPORT INFORMATION
  Report Type: Spontaneous
  Country: US (occurrence: US)
  Receive Date: 20160404
  Receipt Date: 20160520
  Transmission Date: 20160815
  Serious: Yes (Death, Other)
  Sender: FDA-Public Use
  Company Number: US-JNJFOC-20160327426

PATIENT
  Age: 49 Year
  Sex: Female
  Weight: 53.52 kg

DRUGS (4)
  1. METHOTREXATE [Concomitant]
     Active Substance: METHOTREXATE
     Route: 048
     Dates: start: 20140327, end: 201603
  2. PREDNISONE. [Concomitant]
     Active Substance: PREDNISONE
     Route: 048
     Dates: start: 20150825, end: 201603
  3. FLUPHENAZINE [Concomitant]
     Active Substance: FLUPHENAZINE
     Route: 048
     Dates: start: 20160209, end: 201603
  4. XARELTO [Suspect]
     Active Substance: RIVAROXABAN
     Indication: PULMONARY EMBOLISM
     Route: 048
     Dates: start: 20160315, end: 201603

REACTIONS (4)
  - Nausea [Fatal]
  - Dyspnoea [Fatal]
  - Pulmonary embolism [Fatal]
  - Vomiting [Fatal]

NARRATIVE: CASE EVENT DATE: 201603
